FAERS Safety Report 11778969 (Version 1)
Quarter: 2015Q4

REPORT INFORMATION
  Report Type: Spontaneous
  Country: US (occurrence: None)
  Receive Date: 20151125
  Receipt Date: 20151125
  Transmission Date: 20160304
  Serious: No
  Sender: FDA-Public Use
  Company Number: US-MDT-ADR-2015-02239

PATIENT
  Age: 62 Year
  Sex: Female

DRUGS (2)
  1. COMPOUNDED BACLOFEN INTRATHECAL 700 MCG/ML [Suspect]
     Active Substance: BACLOFEN
     Indication: PAIN
     Dosage: 227.56 MCG/DAY
  2. FENTANYL INTRATHECAL 1450 MCG/ML [Suspect]
     Active Substance: FENTANYL
     Dosage: 471.4 MCG/DAY

REACTIONS (1)
  - Discomfort [None]
